FAERS Safety Report 22031577 (Version 1)
Quarter: 2023Q1

REPORT INFORMATION
  Report Type: Report from Study
  Country: US (occurrence: US)
  Receive Date: 20230224
  Receipt Date: 20230224
  Transmission Date: 20230418
  Serious: Yes (Hospitalization, Disabling)
  Sender: FDA-Public Use
  Company Number: US-JNJFOC-20230240928

PATIENT
  Sex: Female

DRUGS (1)
  1. SIMPONI [Suspect]
     Active Substance: GOLIMUMAB
     Indication: Product used for unknown indication
     Route: 041

REACTIONS (5)
  - Disability [Not Recovered/Not Resolved]
  - Caesarean section [Unknown]
  - Hysterectomy [Unknown]
  - Speech disorder [Unknown]
  - Exposure during pregnancy [Recovered/Resolved]
